FAERS Safety Report 6626385-3 (Version None)
Quarter: 2010Q1

REPORT INFORMATION
  Report Type: 
  Country: None (occurrence: None)
  Receive Date: 20100310
  Receipt Date: 20090605
  Transmission Date: 20100710
  Serious: No
  Sender: FDA-Public Use
  Company Number: US-ABBOTT-09P-163-0578636-00

PATIENT
  Sex: Female
  Weight: 54.48 kg

DRUGS (3)
  1. LUPRON DEPOT [Suspect]
     Indication: UTERINE LEIOMYOMA
     Route: 030
     Dates: start: 20060101, end: 20060101
  2. LUPRON DEPOT [Suspect]
     Route: 030
     Dates: start: 20080301, end: 20080501
  3. LUPRON DEPOT [Suspect]
     Route: 030
     Dates: start: 20090301

REACTIONS (1)
  - METRORRHAGIA [None]
